FAERS Safety Report 10680940 (Version 1)
Quarter: 2014Q4

REPORT INFORMATION
  Report Type: Report from Study
  Country: US (occurrence: US)
  Receive Date: 20141229
  Receipt Date: 20141229
  Transmission Date: 20150529
  Serious: Yes (Hospitalization, Other)
  Sender: FDA-Public Use
  Company Number: US-GILEAD-2014-0128764

PATIENT
  Age: 66 Year
  Sex: Male

DRUGS (1)
  1. RANOLAZINE [Suspect]
     Active Substance: RANOLAZINE
     Indication: ANGINA PECTORIS
     Dosage: 500 MG, UNK
     Route: 048

REACTIONS (10)
  - Renal failure [Unknown]
  - Haemorrhoidal haemorrhage [Unknown]
  - Knee arthroplasty [Unknown]
  - Thyroid neoplasm [Unknown]
  - Localised infection [Unknown]
  - Dyspnoea [Unknown]
  - Bladder cancer [Unknown]
  - Glaucoma [Unknown]
  - Intervertebral disc protrusion [Unknown]
  - Bacterial infection [Unknown]
